FAERS Safety Report 7943117-7 (Version None)
Quarter: 2011Q4

REPORT INFORMATION
  Report Type: 
  Country: None (occurrence: None)
  Receive Date: 20111128
  Receipt Date: 20111114
  Transmission Date: 20120403
  Serious: Yes (Other)
  Sender: FDA-Public Use
  Company Number: PHHY2011TR101997

PATIENT
  Age: 25 Year
  Sex: Male

DRUGS (3)
  1. CYCLOSPORINE [Suspect]
     Indication: BEHCET'S SYNDROME
  2. PREDNISOLONE [Concomitant]
     Indication: BEHCET'S SYNDROME
     Dosage: 10 MG, PER DAY
  3. AZATHIOPRINE [Concomitant]
     Indication: BEHCET'S SYNDROME

REACTIONS (5)
  - CYSTOID MACULAR OEDEMA [None]
  - BEHCET'S SYNDROME [None]
  - DRUG RESISTANCE [None]
  - UVEITIS [None]
  - EYE INFLAMMATION [None]
